FAERS Safety Report 6453639-6 (Version None)
Quarter: 2009Q4

REPORT INFORMATION
  Report Type: 
  Country: None (occurrence: None)
  Receive Date: 20091124
  Receipt Date: 20091111
  Transmission Date: 20100525
  Serious: Yes (Hospitalization, Other)
  Sender: FDA-Public Use
  Company Number: PHHO2009CZ14020

PATIENT
  Sex: Female
  Weight: 88 kg

DRUGS (1)
  1. STI571/CGP57148B T35717+TAB [Suspect]
     Indication: GASTROINTESTINAL STROMAL TUMOUR
     Dosage: 400 MG
     Route: 048
     Dates: start: 20091005, end: 20091104

REACTIONS (4)
  - ABDOMINAL DISCOMFORT [None]
  - ABDOMINAL PAIN [None]
  - ATRIAL FIBRILLATION [None]
  - PNEUMONIA [None]
